FAERS Safety Report 4272563-0 (Version None)
Quarter: 2004Q1

REPORT INFORMATION
  Report Type: 
  Country: None (occurrence: None)
  Receive Date: 20040114
  Receipt Date: 20040114
  Transmission Date: 20041129
  Serious: Yes (Hospitalization)
  Sender: FDA-Public Use
  Company Number: None

PATIENT
  Age: 83 Year
  Sex: Male

DRUGS (2)
  1. SULFAMETHOXAZOLE [Suspect]
  2. TRIMETHOPRIM [Suspect]

REACTIONS (2)
  - CONFUSIONAL STATE [None]
  - HALLUCINATION [None]
